FAERS Safety Report 19762671 (Version 1)
Quarter: 2021Q3

REPORT INFORMATION
  Report Type: Spontaneous
  Country: IN (occurrence: IN)
  Receive Date: 20210828
  Receipt Date: 20210828
  Transmission Date: 20211014
  Serious: Yes (Death)
  Sender: FDA-Public Use
  Company Number: IN-ROCHE-2887336

PATIENT
  Age: 44 Year
  Sex: Female

DRUGS (1)
  1. TECENTRIQ [Suspect]
     Active Substance: ATEZOLIZUMAB
     Indication: METASTATIC GASTRIC CANCER
     Route: 041
     Dates: start: 20210806

REACTIONS (2)
  - Metastatic neoplasm [Fatal]
  - Off label use [Fatal]

NARRATIVE: CASE EVENT DATE: 20210818
